FAERS Safety Report 7578675-8 (Version None)
Quarter: 2011Q2

REPORT INFORMATION
  Report Type: 
  Country: None (occurrence: None)
  Receive Date: 20110628
  Receipt Date: 20110624
  Transmission Date: 20111010
  Serious: Yes (Death, Hospitalization, Other)
  Sender: FDA-Public Use
  Company Number: PHEH2007US03275

PATIENT
  Sex: Male
  Weight: 97.959 kg

DRUGS (68)
  1. ZOMETA [Suspect]
     Indication: MULTIPLE MYELOMA
     Dosage: 4 MG, UNK
     Dates: start: 20041129, end: 20061001
  2. RADIATION THERAPY [Concomitant]
  3. KADIAN ^KNOLL^ [Concomitant]
     Dosage: UNK
     Dates: start: 20040101
  4. METHADONE HCL [Concomitant]
  5. ALLEGRA [Concomitant]
     Dosage: 180 MG, UNK
  6. NEURONTIN [Concomitant]
     Dosage: 600 MG, BID
  7. FLUVAX [Concomitant]
     Dates: start: 20061001
  8. OXYGEN [Concomitant]
  9. MS CONTIN [Concomitant]
     Indication: PAIN
     Dosage: 100 MG, UNK
  10. AMBIEN [Concomitant]
     Dosage: 10 MG, UNK
  11. ZITHROMAX [Concomitant]
  12. ASPIRIN [Concomitant]
  13. ALBUTEROL SULFATE AUTOHALER [Concomitant]
  14. NEXIUM [Concomitant]
     Dosage: 40 MG, UNK
  15. ADVAIR DISKUS 100/50 [Concomitant]
     Dosage: UNK
  16. VELCADE [Concomitant]
     Dosage: UNK
     Dates: start: 20060501
  17. MULTIVITAMIN AND MINERAL SUPP [Concomitant]
     Dosage: UNK, 3 PILLS A DAY TAKEN WITH BREAKFAST
  18. FUROSEMIDE [Concomitant]
     Dosage: 20 MG, QD
  19. IPRATROPIUM BROMIDE [Concomitant]
     Dosage: 2 INHALATION FOUR TIMES A DAY
     Route: 048
     Dates: start: 20061102, end: 20061121
  20. PNEUMOVAX 23 [Concomitant]
     Dates: start: 20061001
  21. THALIDOMIDE [Concomitant]
     Indication: MULTIPLE MYELOMA
     Dosage: 100 MG, QD
     Dates: start: 20060601, end: 20060919
  22. NAPROSYN [Concomitant]
  23. KEFLEX [Concomitant]
  24. METFORMIN HCL [Concomitant]
     Dosage: 50 MG, UNK
  25. ATENOLOL [Concomitant]
     Dosage: 100 MG, UNK
  26. CLONAZEPAM [Concomitant]
  27. NITROFURAN [Concomitant]
  28. SODIUM BICARBONATE [Concomitant]
     Dosage: UNK
  29. MEGESTROL ACETATE [Concomitant]
     Dosage: 40MG, 2 TEAS DAILY WHEN NEEDED
  30. IBUPROFEN [Concomitant]
  31. STOOL SOFTENER [Concomitant]
     Dosage: WHEN NEEDED
  32. COMPAZINE [Concomitant]
     Dosage: 10 MG, AS NEEDED
  33. LIDOCAINE [Concomitant]
  34. SPIRIVA [Concomitant]
  35. ASPIRIN [Concomitant]
  36. BACTRIM [Concomitant]
  37. AREDIA [Suspect]
     Indication: MULTIPLE MYELOMA
     Dosage: 90 MG, UNK
  38. THALIDOMIDE [Concomitant]
     Dosage: 200 MG, QD
     Dates: start: 20060920
  39. PREDNISONE [Concomitant]
  40. ZANAFLEX [Concomitant]
     Dosage: 4 MG, UNK
  41. ZOLOFT [Concomitant]
     Dosage: 50 MG, UNK
  42. LYRICA [Concomitant]
  43. PHYSICAL THERAPY [Concomitant]
  44. PLAVIX [Concomitant]
     Dosage: 75 MG, UNK
  45. SERTRALINE HYDROCHLORIDE [Concomitant]
  46. CHANTIX [Concomitant]
  47. FENTANYL [Concomitant]
  48. PROCRIT                            /00909301/ [Concomitant]
  49. OXYCONTIN [Concomitant]
     Indication: PAIN
  50. FLOMAX [Concomitant]
     Dosage: 0.4 UNK, UNK
  51. MOMETASONE FUROATE [Concomitant]
     Dosage: 2 INHALATION FOUR TIMES A DAY
     Route: 048
     Dates: start: 20061102
  52. IPRATROPIUM BROMIDE [Concomitant]
     Dosage: 2 INHALATION FOUR TIMES A DAY
     Route: 048
     Dates: start: 20070619
  53. FERROUS SULFATE TAB [Concomitant]
  54. CHEMOTHERAPEUTICS NOS [Concomitant]
  55. NEUROTON [Concomitant]
     Dosage: 400 MG, UNK
  56. ARANESP [Concomitant]
     Dosage: UNK
  57. GENTEAL                            /03186201/ [Concomitant]
  58. LEVOSALBUTAMOL [Concomitant]
     Dosage: 2 INHALATION FOUR TIMES A DAY
     Route: 048
     Dates: start: 20061102
  59. VALERIAN [Concomitant]
  60. NORVASC [Concomitant]
     Dosage: 5 MG, UNK
  61. SYNACORT [Concomitant]
  62. NITROGLYCERIN [Suspect]
  63. ESTER-C [Concomitant]
  64. FLUOXETINE HCL [Concomitant]
     Dosage: 2 CAPSULES DAILY
     Route: 048
     Dates: start: 20061102, end: 20071121
  65. SENOKOT                                 /UNK/ [Concomitant]
  66. MELPHALAN HYDROCHLORIDE [Concomitant]
  67. HUMIBID [Concomitant]
  68. ACYCLOVIR [Concomitant]

REACTIONS (100)
  - PAIN [None]
  - PERONEAL NERVE PALSY [None]
  - IMPAIRED HEALING [None]
  - HYPERCALCAEMIA OF MALIGNANCY [None]
  - HYPOKALAEMIA [None]
  - HYPOAESTHESIA [None]
  - MYALGIA [None]
  - ARTHRALGIA [None]
  - TOOTH DISORDER [None]
  - LUNG INFILTRATION [None]
  - ANXIETY [None]
  - AORTIC ANEURYSM [None]
  - HAEMATURIA [None]
  - BUNDLE BRANCH BLOCK LEFT [None]
  - EYE NAEVUS [None]
  - OPTIC NERVE CUPPING [None]
  - VESICAL FISTULA [None]
  - ASTHENIA [None]
  - CONVULSION [None]
  - DIVERTICULUM [None]
  - RESPIRATORY DISTRESS [None]
  - DRUG ABUSE [None]
  - HAEMATOMA [None]
  - ACQUIRED OESOPHAGEAL WEB [None]
  - LEFT VENTRICULAR DYSFUNCTION [None]
  - EJECTION FRACTION ABNORMAL [None]
  - VISUAL ACUITY REDUCED [None]
  - WEIGHT DECREASED [None]
  - GALLBLADDER POLYP [None]
  - PNEUMONIA [None]
  - CONFUSIONAL STATE [None]
  - GENERAL PHYSICAL HEALTH DETERIORATION [None]
  - BLOOD IMMUNOGLOBULIN G INCREASED [None]
  - BLOOD CALCIUM DECREASED [None]
  - FEELING ABNORMAL [None]
  - ASTIGMATISM [None]
  - PANCYTOPENIA [None]
  - CIRCULATORY COLLAPSE [None]
  - MUSCULOSKELETAL PAIN [None]
  - HYPOTENSION [None]
  - PROTEIN URINE PRESENT [None]
  - MYOCARDIAL INFARCTION [None]
  - CEREBROVASCULAR ACCIDENT [None]
  - LETHARGY [None]
  - ARTERIOSCLEROSIS [None]
  - COUGH [None]
  - OSTEOMYELITIS [None]
  - BOWEN'S DISEASE [None]
  - VISION BLURRED [None]
  - BUNDLE BRANCH BLOCK RIGHT [None]
  - HYPERMETROPIA [None]
  - ABNORMAL SENSATION IN EYE [None]
  - ANAEMIA OF CHRONIC DISEASE [None]
  - SEPSIS [None]
  - VIRAL INFECTION [None]
  - WEIGHT INCREASED [None]
  - FACIAL BONES FRACTURE [None]
  - DYSPNOEA [None]
  - EXPOSED BONE IN JAW [None]
  - MULTIPLE MYELOMA [None]
  - PLASMACYTOSIS [None]
  - BRONCHITIS [None]
  - THROMBOCYTOPENIA [None]
  - DIABETES MELLITUS [None]
  - DECREASED INTEREST [None]
  - RENAL FAILURE CHRONIC [None]
  - BLEPHARITIS [None]
  - DECUBITUS ULCER [None]
  - DEHYDRATION [None]
  - ASTEATOSIS [None]
  - CELLULITIS [None]
  - OSTEOARTHRITIS [None]
  - HYPERGLYCAEMIA [None]
  - DEATH [None]
  - HALLUCINATION [None]
  - SLEEP DISORDER DUE TO A GENERAL MEDICAL CONDITION [None]
  - LOCALISED INFECTION [None]
  - SQUAMOUS CELL CARCINOMA OF SKIN [None]
  - MYELOMA RECURRENCE [None]
  - ANGINA UNSTABLE [None]
  - SCAR [None]
  - HEPATIC STEATOSIS [None]
  - RADICULITIS LUMBOSACRAL [None]
  - DERMAL CYST [None]
  - INTERVERTEBRAL DISC DEGENERATION [None]
  - DYSPEPSIA [None]
  - NEURALGIA [None]
  - CHRONIC OBSTRUCTIVE PULMONARY DISEASE [None]
  - PARAPLEGIA [None]
  - BACK PAIN [None]
  - OSTEONECROSIS OF JAW [None]
  - DYSPHAGIA [None]
  - MYOCLONUS [None]
  - GLAUCOMA [None]
  - FOOT DEFORMITY [None]
  - BLADDER CANCER [None]
  - LIGAMENT SPRAIN [None]
  - LUMBAR SPINAL STENOSIS [None]
  - RIB FRACTURE [None]
  - OSTEOSCLEROSIS [None]
